FAERS Safety Report 15152743 (Version 1)
Quarter: 2018Q4

REPORT INFORMATION
  Report Type: Other
  Country: RU (occurrence: RU)
  Receive Date: 20180717
  Receipt Date: 20180717
  Transmission Date: 20190204
  Serious: No
  Sender: FDA-Public Use
  Company Number: RU-LUPIN PHARMACEUTICALS INC.-2018-03731

PATIENT
  Age: 37 Year
  Sex: Female
  Weight: 40 kg

DRUGS (7)
  1. VITAMIN B1 [Concomitant]
     Active Substance: THIAMINE HYDROCHLORIDE
     Indication: PROPHYLAXIS
     Dosage: UNK
     Route: 030
     Dates: start: 20130410, end: 20130429
  2. VITAMIN B12 [Concomitant]
     Active Substance: CYANOCOBALAMIN
     Indication: PROPHYLAXIS
     Dosage: UNK
     Route: 030
     Dates: start: 20130410, end: 20130425
  3. FENAZID [Suspect]
     Active Substance: FERROUS SULFATE DIHYDRATE\ISONIAZID
     Indication: PULMONARY TUBERCULOSIS
     Dosage: 0.25 G, BID
     Route: 048
     Dates: start: 20130410, end: 20130508
  4. RIFABUTIN. [Suspect]
     Active Substance: RIFABUTIN
     Indication: PULMONARY TUBERCULOSIS
     Dosage: 0.3 G, QD
     Route: 048
     Dates: start: 20130410, end: 20130508
  5. COMBUTOL [Concomitant]
     Active Substance: ETHAMBUTOL HYDROCHLORIDE
     Indication: PULMONARY TUBERCULOSIS
     Dosage: UNK
     Route: 048
     Dates: start: 20130410, end: 20130508
  6. VITAMIN B6 [Concomitant]
     Active Substance: PYRIDOXINE HYDROCHLORIDE
     Indication: PROPHYLAXIS
     Dosage: UNK
     Route: 030
     Dates: start: 20130411, end: 20130430
  7. PYRAZINAMIDE. [Suspect]
     Active Substance: PYRAZINAMIDE
     Indication: PULMONARY TUBERCULOSIS
     Dosage: 1.0 G, QD
     Route: 048
     Dates: start: 20130410, end: 20130508

REACTIONS (1)
  - Alanine aminotransferase increased [Recovering/Resolving]

NARRATIVE: CASE EVENT DATE: 20130507
